FAERS Safety Report 8849008 (Version 2)
Quarter: 2012Q4

REPORT INFORMATION
  Report Type: 
  Country: US (occurrence: US)
  Receive Date: 20121019
  Receipt Date: 20121219
  Transmission Date: 20130627
  Serious: Yes (Hospitalization, Other)
  Sender: FDA-Public Use
  Company Number: US-ELI_LILLY_AND_COMPANY-US201210002277

PATIENT
  Age: 64 Year
  Sex: Female
  Weight: 60.77 kg

DRUGS (4)
  1. CYMBALTA [Suspect]
     Indication: BACK PAIN
     Dosage: 60 mg, qd
     Dates: start: 201204, end: 201209
  2. FONDAPARINUX [Concomitant]
     Dosage: 2.5 mg, qd
  3. PREDNISONE [Concomitant]
     Dosage: 30 mg, unknown
  4. IRON [Concomitant]

REACTIONS (11)
  - Gastrointestinal tract irritation [Recovering/Resolving]
  - Haemorrhage [Recovering/Resolving]
  - Skin ulcer [Recovering/Resolving]
  - Somnambulism [Recovered/Resolved]
  - Fall [Recovering/Resolving]
  - Contusion [Recovering/Resolving]
  - Oedema peripheral [Unknown]
  - Weight decreased [Recovering/Resolving]
  - Malaise [Unknown]
  - Decreased appetite [Recovering/Resolving]
  - Rash [Recovering/Resolving]
